FAERS Safety Report 10200781 (Version 3)
Quarter: 2014Q3

REPORT INFORMATION
  Report Type: Spontaneous
  Country: US (occurrence: US)
  Receive Date: 20140528
  Receipt Date: 20140704
  Transmission Date: 20150326
  Serious: No
  Sender: FDA-Public Use
  Company Number: US-009507513-1405USA011166

PATIENT
  Age: 16 Year
  Sex: Female
  Weight: 61.68 kg

DRUGS (1)
  1. NEXPLANON [Suspect]
     Active Substance: ETONOGESTREL
     Indication: CONTRACEPTION
     Dosage: 68 MG/ONCE EVERY 3 YEARS
     Route: 059
     Dates: start: 20140428, end: 20140517

REACTIONS (4)
  - Implant site extravasation [Recovered/Resolved]
  - Implant site pain [Unknown]
  - Implant site swelling [Unknown]
  - Device expulsion [Recovered/Resolved]

NARRATIVE: CASE EVENT DATE: 20140508
